FAERS Safety Report 5500198-8 (Version None)
Quarter: 2007Q4

REPORT INFORMATION
  Report Type: 
  Country: None (occurrence: None)
  Receive Date: 20071025
  Receipt Date: 20071015
  Transmission Date: 20080405
  Serious: Yes (Life-Threatening, Hospitalization, Other)
  Sender: FDA-Public Use
  Company Number: PHFR2007GB02994

PATIENT
  Age: 82 Year
  Sex: Male
  Weight: 80 kg

DRUGS (6)
  1. DICLOFENAC SODIUM [Suspect]
     Dosage: 50 MG, TID, ORAL
     Route: 048
     Dates: start: 19980101
  2. ASPIRIN [Suspect]
     Dosage: 75 MG, QD, ORAL
     Route: 048
     Dates: start: 19970101
  3. ATORVASTATIN CALCIUM [Concomitant]
  4. DIGOXIN [Concomitant]
  5. FELODIPINE [Concomitant]
  6. FUROSEMIDE [Concomitant]

REACTIONS (2)
  - GASTRIC ULCER [None]
  - GASTRIC ULCER PERFORATION [None]
